FAERS Safety Report 8005898-6 (Version None)
Quarter: 2011Q4

REPORT INFORMATION
  Report Type: 
  Country: None (occurrence: None)
  Receive Date: 20111223
  Receipt Date: 20111216
  Transmission Date: 20120403
  Serious: Yes (Hospitalization)
  Sender: FDA-Public Use
  Company Number: ES-ASTRAZENECA-2011SE76140

PATIENT
  Age: 88 Year
  Sex: Female

DRUGS (2)
  1. SEROQUEL XR [Suspect]
     Indication: AGITATION
     Route: 048
     Dates: start: 20110709
  2. SEROQUEL XR [Suspect]
     Route: 048

REACTIONS (2)
  - SYNCOPE [None]
  - DEPRESSED LEVEL OF CONSCIOUSNESS [None]
